FAERS Safety Report 25430831 (Version 4)
Quarter: 2025Q3

REPORT INFORMATION
  Report Type: Report from Study
  Country: MX (occurrence: MX)
  Receive Date: 20250612
  Receipt Date: 20250810
  Transmission Date: 20251020
  Serious: Yes (Hospitalization, Other)
  Sender: ALEXION PHARMACEUTICALS
  Company Number: MX-AstraZeneca-CH-00887653A

PATIENT
  Age: 55 Year
  Sex: Female
  Weight: 80.5 kg

DRUGS (8)
  1. SODIUM ZIRCONIUM CYCLOSILICATE [Suspect]
     Active Substance: SODIUM ZIRCONIUM CYCLOSILICATE
     Indication: Hyperkalaemia
     Dosage: 20 MILLIGRAM, Q8H
     Dates: start: 20250530, end: 20250531
  2. SODIUM ZIRCONIUM CYCLOSILICATE [Suspect]
     Active Substance: SODIUM ZIRCONIUM CYCLOSILICATE
     Dosage: 10 MILLIGRAM, QOD
     Dates: start: 20250602
  3. DAPAGLIFLOZIN [Suspect]
     Active Substance: DAPAGLIFLOZIN
     Indication: Blood glucose increased
     Dosage: 10 MILLIGRAM, QD
     Dates: start: 20250529
  4. RIVAROXABAN [Concomitant]
     Active Substance: RIVAROXABAN
     Indication: Cerebrovascular accident
     Dosage: 2.5 MILLIGRAM, Q12H
     Dates: start: 20250602
  5. FUROSEMIDE [Concomitant]
     Active Substance: FUROSEMIDE
  6. ENTRESTO [Concomitant]
     Active Substance: SACUBITRIL\VALSARTAN
     Indication: Hypertension
     Dosage: 50 MILLIGRAM, Q12H
     Dates: start: 20250602
  7. CLOPIDOGREL [Concomitant]
     Active Substance: CLOPIDOGREL BISULFATE
     Indication: Cerebrovascular accident
     Dosage: 1 DOSAGE FORM, QD
     Dates: start: 20250602
  8. ASPIRIN [Concomitant]
     Active Substance: ASPIRIN
     Route: 065

REACTIONS (6)
  - Cerebrovascular accident [Recovering/Resolving]
  - Weight decreased [Recovering/Resolving]
  - Nervous system disorder [Recovering/Resolving]
  - Tremor [Recovering/Resolving]
  - Haematoma [Recovering/Resolving]
  - Blood glucose increased [Recovered/Resolved]

NARRATIVE: CASE EVENT DATE: 20250531
